FAERS Safety Report 5105262-3 (Version None)
Quarter: 2006Q3

REPORT INFORMATION
  Report Type: 
  Country: None (occurrence: None)
  Receive Date: 20060911
  Receipt Date: 20060829
  Transmission Date: 20061208
  Serious: Yes (Death, Life-Threatening)
  Sender: FDA-Public Use
  Company Number: HQWYE170117MAR05

PATIENT
  Age: 68 Year
  Sex: Female
  Weight: 90.35 kg

DRUGS (29)
  1. MYLOTARG [Suspect]
     Indication: ACUTE MYELOID LEUKAEMIA
     Dosage: SINGLE DOSE OF 11.4 MG, INTRAVENOUS
     Route: 042
     Dates: start: 20041205, end: 20041205
  2. CYTARABINE [Suspect]
     Indication: ACUTE MYELOID LEUKAEMIA
     Dates: start: 20041201, end: 20041201
  3. DAUNORUBICIN HCL [Suspect]
     Indication: ACUTE MYELOID LEUKAEMIA
     Dates: start: 20041201, end: 20041201
  4. FUROSEMIDE [Concomitant]
  5. ZOSYN [Concomitant]
  6. LEVOFLOXACIN [Concomitant]
  7. VORICONAZOLE (VORICONAZOLE) [Concomitant]
  8. CEFEPIME (CEFEPIME) [Concomitant]
  9. NEUPOGEN [Concomitant]
  10. AMBISOME [Concomitant]
  11. ACETAMINOPHEN [Concomitant]
  12. DIPHENHYDRAMINE HCL [Concomitant]
  13. VANCOMYCIN [Concomitant]
  14. POTASSIUM CHLORIDE [Concomitant]
  15. METRONIDAZOLE [Concomitant]
  16. GENTAMICIN SULFATE [Concomitant]
  17. GRANISETRON (GRANISETRON) [Concomitant]
  18. ACYCLOVIR [Concomitant]
  19. SENNA (SENNA) [Concomitant]
  20. DOCUSATE SODIUM (DOCUSATE SODIUM) [Concomitant]
  21. SODIUM BICARBONATE IN PLASTIC CONTAINER [Concomitant]
  22. SODIUM CHLORIDE 0.9% [Concomitant]
  23. PROTONIX [Concomitant]
  24. NYSTATIN [Concomitant]
  25. ALLOPURINOL [Concomitant]
  26. DIAZEPAM [Concomitant]
  27. LORAZEPAM [Concomitant]
  28. ALBUTEROL [Concomitant]
  29. OXYCODONE HCL [Concomitant]

REACTIONS (8)
  - BRONCHIOLOALVEOLAR CARCINOMA [None]
  - DISEASE PROGRESSION [None]
  - FEBRILE NEUTROPENIA [None]
  - LYMPHOMA [None]
  - PERICARDIAL EFFUSION [None]
  - PLEURAL EFFUSION [None]
  - PNEUMONIA [None]
  - PULMONARY OEDEMA [None]
